FAERS Safety Report 15027482 (Version 4)
Quarter: 2025Q3

REPORT INFORMATION
  Report Type: Spontaneous
  Country: EU (occurrence: EU)
  Receive Date: 20180619
  Receipt Date: 20250718
  Transmission Date: 20251021
  Serious: Yes (Other)
  Sender: AUROBINDO
  Company Number: EU-AUROBINDO-AUR-APL-2018-032050

PATIENT
  Age: 27 Year
  Sex: Female
  Weight: 42 kg

DRUGS (8)
  1. DOXORUBICIN [Suspect]
     Active Substance: DOXORUBICIN
     Indication: Diffuse large B-cell lymphoma
     Route: 065
  2. PREDNISONE [Suspect]
     Active Substance: PREDNISONE
     Indication: Diffuse large B-cell lymphoma
     Route: 065
  3. METHOTREXATE [Suspect]
     Active Substance: METHOTREXATE
     Indication: Diffuse large B-cell lymphoma
     Route: 037
  4. METHOTREXATE [Suspect]
     Active Substance: METHOTREXATE
  5. BLEOMYCIN [Suspect]
     Active Substance: BLEOMYCIN SULFATE
     Indication: Diffuse large B-cell lymphoma
     Route: 065
  6. RITUXIMAB [Suspect]
     Active Substance: RITUXIMAB
     Indication: Diffuse large B-cell lymphoma
     Route: 065
  7. CYCLOPHOSPHAMIDE [Suspect]
     Active Substance: CYCLOPHOSPHAMIDE
     Indication: Diffuse large B-cell lymphoma
     Route: 065
  8. VINCRISTINE [Suspect]
     Active Substance: VINCRISTINE
     Indication: Diffuse large B-cell lymphoma
     Route: 065

REACTIONS (10)
  - Combined immunodeficiency [Unknown]
  - Condition aggravated [Unknown]
  - Lymphopenia [Unknown]
  - Epstein-Barr virus infection reactivation [Unknown]
  - Lymphoproliferative disorder [Recovering/Resolving]
  - Primary immunodeficiency syndrome [Unknown]
  - Autoimmune haemolytic anaemia [Recovering/Resolving]
  - Neutropenia [Recovering/Resolving]
  - Granuloma [Recovering/Resolving]
  - Skin disorder [Recovering/Resolving]
